FAERS Safety Report 6543673-X (Version None)
Quarter: 2010Q1

REPORT INFORMATION
  Report Type: 
  Country: None (occurrence: None)
  Receive Date: 20100120
  Receipt Date: 20100113
  Transmission Date: 20100710
  Serious: Yes (Hospitalization)
  Sender: FDA-Public Use
  Company Number: FR-ASTRAZENECA-2009SE13437

PATIENT
  Age: 60 Year
  Sex: Female
  Weight: 70 kg

DRUGS (5)
  1. CRESTOR [Suspect]
     Indication: HYPERCHOLESTEROLAEMIA
     Route: 048
     Dates: start: 20080501, end: 20090701
  2. CRESTOR [Suspect]
     Route: 048
  3. CHONDROSULF [Concomitant]
     Indication: OSTEOARTHRITIS
  4. VITAMIN B6 [Concomitant]
  5. VASTAREL [Concomitant]

REACTIONS (2)
  - DEAFNESS UNILATERAL [None]
  - PRESYNCOPE [None]
